FAERS Safety Report 4556657-8 (Version None)
Quarter: 2005Q1

REPORT INFORMATION
  Report Type: 
  Country: None (occurrence: None)
  Receive Date: 20050118
  Receipt Date: 20050106
  Transmission Date: 20050727
  Serious: Yes (Hospitalization, Other)
  Sender: FDA-Public Use
  Company Number: HQWYE471708DEC03

PATIENT
  Age: 56 Year
  Sex: Male
  Weight: 79.5 kg

DRUGS (6)
  1. RAPAMUNE [Suspect]
     Indication: PROPHYLAXIS AGAINST TRANSPLANT REJECTION
     Dosage: VARYING DOSE FROM 5 MG TO 25MG; AT EVENT
     Dates: start: 20031108
  2. NEORAL [Concomitant]
  3. PREDNISONE [Concomitant]
  4. MYCELEX [Concomitant]
  5. METOPROLOL [Concomitant]
  6. PEPCID [Concomitant]

REACTIONS (11)
  - BLOOD CHLORIDE INCREASED [None]
  - BLOOD CREATININE INCREASED [None]
  - BLOOD PRESSURE INCREASED [None]
  - CARDIAC MURMUR [None]
  - HAEMATOCRIT DECREASED [None]
  - HAEMOGLOBIN DECREASED [None]
  - HAEMOPTYSIS [None]
  - INFECTION [None]
  - PLATELET COUNT DECREASED [None]
  - PNEUMONIA PRIMARY ATYPICAL [None]
  - PULMONARY OEDEMA [None]
